FAERS Safety Report 15864516 (Version 3)
Quarter: 2019Q1

REPORT INFORMATION
  Report Type: Spontaneous
  Country: US (occurrence: US)
  Receive Date: 20190124
  Receipt Date: 20190328
  Transmission Date: 20190417
  Serious: No
  Sender: FDA-Public Use
  Company Number: US-TEVA-2019-US-994993

PATIENT
  Sex: Female

DRUGS (1)
  1. ACTAVIS ALPRAZOLAM [Suspect]
     Active Substance: ALPRAZOLAM
     Indication: ANXIETY
     Route: 048

REACTIONS (3)
  - Anxiety [Unknown]
  - Drug screen negative [Unknown]
  - Drug ineffective [Unknown]
